FAERS Safety Report 5067513-3 (Version None)
Quarter: 2006Q3

REPORT INFORMATION
  Report Type: 
  Country: None (occurrence: None)
  Receive Date: 20060802
  Receipt Date: 20060724
  Transmission Date: 20061208
  Serious: Yes (Death)
  Sender: FDA-Public Use
  Company Number: US-JNJFOC-20060606362

PATIENT
  Sex: Female

DRUGS (9)
  1. REMICADE [Suspect]
     Route: 042
  2. REMICADE [Suspect]
     Indication: JUVENILE ARTHRITIS
     Dosage: DOSE: ^400 MG (INITIAL 150 X 3, 200 MG)^
     Route: 042
  3. IMURAN [Concomitant]
  4. IMURAN [Concomitant]
     Indication: JUVENILE ARTHRITIS
     Dosage: 50 MG QD INCREASED TO 100 MG
  5. PLAQUENIL [Concomitant]
     Indication: JUVENILE ARTHRITIS
  6. BIRTH CONTROL PILLS [Concomitant]
     Indication: CONTRACEPTION
  7. METHOTREXATE [Concomitant]
  8. METHOTREXATE [Concomitant]
     Indication: JUVENILE ARTHRITIS
     Dosage: 15-25 MG
  9. ENBREL [Concomitant]
     Indication: JUVENILE ARTHRITIS

REACTIONS (1)
  - ADENOCARCINOMA [None]
